FAERS Safety Report 10986464 (Version 2)
Quarter: 2015Q2

REPORT INFORMATION
  Report Type: Spontaneous
  Country: US (occurrence: US)
  Receive Date: 20150404
  Receipt Date: 20150525
  Transmission Date: 20150821
  Serious: No
  Sender: FDA-Public Use
  Company Number: US-JNJFOC-20131206906

PATIENT
  Age: 68 Year
  Sex: Female
  Weight: 90.72 kg

DRUGS (5)
  1. IMODIUM MULTI-SYMPTOM RELIEF [Suspect]
     Active Substance: DIMETHICONE\LOPERAMIDE HYDROCHLORIDE
     Indication: DIARRHOEA
     Dosage: EVERY 2 HOURS; 3 PILLS
     Route: 048
     Dates: start: 20131209
  2. IMODIUM MULTI-SYMPTOM RELIEF [Suspect]
     Active Substance: DIMETHICONE\LOPERAMIDE HYDROCHLORIDE
     Route: 048
  3. XOLOF [Concomitant]
     Indication: CHEMOTHERAPY
     Route: 065
  4. LOZAR [Concomitant]
     Indication: HYPERTENSION
     Dosage: 50 MG/12.5 MG
     Route: 065
  5. OMEPRAZOLE. [Concomitant]
     Active Substance: OMEPRAZOLE
     Indication: GASTROOESOPHAGEAL REFLUX DISEASE
     Route: 065

REACTIONS (2)
  - Drug ineffective [Unknown]
  - Abdominal distension [Unknown]
